FAERS Safety Report 23893264 (Version 1)
Quarter: 2024Q2

REPORT INFORMATION
  Report Type: Spontaneous
  Country: US (occurrence: None)
  Receive Date: 20240524
  Receipt Date: 20240524
  Transmission Date: 20240715
  Serious: No
  Sender: FDA-Public Use
  Company Number: US-ROCHE-3338565

PATIENT
  Sex: Female

DRUGS (8)
  1. ACTEMRA [Suspect]
     Active Substance: TOCILIZUMAB
     Indication: Giant cell arteritis
     Dosage: UNKOWN
     Route: 058
     Dates: start: 20230307
  2. ACTEMRA [Suspect]
     Active Substance: TOCILIZUMAB
  3. ACTEMRA [Suspect]
     Active Substance: TOCILIZUMAB
     Indication: Polymyalgia rheumatica
  4. ACTEMRA [Suspect]
     Active Substance: TOCILIZUMAB
  5. ALLOPURINOL [Concomitant]
     Active Substance: ALLOPURINOL
  6. LEVOTHYROXINE [Concomitant]
     Active Substance: LEVOTHYROXINE\LEVOTHYROXINE SODIUM
     Dosage: 88MCG
  7. TORSEMIDE [Concomitant]
     Active Substance: TORSEMIDE
  8. XARELTO [Concomitant]
     Active Substance: RIVAROXABAN

REACTIONS (2)
  - Illness [Not Recovered/Not Resolved]
  - Drug ineffective [Unknown]
